FAERS Safety Report 15868156 (Version 4)
Quarter: 2019Q1

REPORT INFORMATION
  Report Type: Spontaneous
  Country: US (occurrence: US)
  Receive Date: 20190125
  Receipt Date: 20190308
  Transmission Date: 20190417
  Serious: Yes (Hospitalization)
  Sender: FDA-Public Use
  Company Number: US-VERTEX PHARMACEUTICALS-2019-000513

PATIENT
  Sex: Female

DRUGS (32)
  1. HYDROCHLOROTHIAZID [Concomitant]
     Active Substance: HYDROCHLOROTHIAZIDE
  2. MAGNESIUM OXIDE. [Concomitant]
     Active Substance: MAGNESIUM OXIDE
  3. URSODIOL. [Concomitant]
     Active Substance: URSODIOL
  4. SYMBICORT [Concomitant]
     Active Substance: BUDESONIDE\FORMOTEROL FUMARATE DIHYDRATE
  5. CREON [Concomitant]
     Active Substance: PANCRELIPASE AMYLASE\PANCRELIPASE LIPASE\PANCRELIPASE PROTEASE
  6. ELIQUIS [Concomitant]
     Active Substance: APIXABAN
  7. VITAMIN A                          /00056001/ [Concomitant]
     Active Substance: RETINOL
  8. ONE TOUCH [Concomitant]
     Active Substance: DEXTROSE
  9. SMZ-TMP [Concomitant]
     Active Substance: SULFAMETHOXAZOLE\TRIMETHOPRIM
  10. PREDNISONE. [Concomitant]
     Active Substance: PREDNISONE
  11. PULMOZYME [Concomitant]
     Active Substance: DORNASE ALFA
  12. SENNA                              /00142201/ [Concomitant]
     Active Substance: SENNA LEAF
  13. ZINC GLUCONATE [Concomitant]
     Active Substance: ZINC GLUCONATE
  14. FLUTICASONE. [Concomitant]
     Active Substance: FLUTICASONE
  15. MONTELUKAST [Concomitant]
     Active Substance: MONTELUKAST SODIUM
  16. PULMICORT TURBUHALER [Concomitant]
     Active Substance: BUDESONIDE
  17. RANITIDINE. [Concomitant]
     Active Substance: RANITIDINE
  18. TRAZODONE [Concomitant]
     Active Substance: TRAZODONE HYDROCHLORIDE
  19. CAYSTON [Suspect]
     Active Substance: AZTREONAM
     Indication: CYSTIC FIBROSIS
     Dosage: 75 MG, TID QOM
     Route: 055
     Dates: start: 20150804
  20. TYLENOL [Concomitant]
     Active Substance: ACETAMINOPHEN
  21. CYCLOBENZAPRIN [Concomitant]
     Active Substance: CYCLOBENZAPRINE
  22. SUCRAFATE [Concomitant]
     Active Substance: SUCRALFATE
  23. HYDROXYCHLOROQUINE [Concomitant]
     Active Substance: HYDROXYCHLOROQUINE
  24. BASAGLAR [Concomitant]
     Active Substance: INSULIN GLARGINE
  25. VITAMIN D                          /00107901/ [Concomitant]
     Active Substance: ERGOCALCIFEROL
  26. SYMDEKO [Suspect]
     Active Substance: IVACAFTOR\TEZACAFTOR
     Indication: CYSTIC FIBROSIS
     Dosage: 100MG TEZACAFTOR/150MG IVACAFTOR AM; 150MG IVACAFTOR PM
     Route: 048
     Dates: start: 20181110
  27. ATROVENT [Concomitant]
     Active Substance: IPRATROPIUM BROMIDE
  28. OMEPRAZOLE. [Concomitant]
     Active Substance: OMEPRAZOLE
  29. BUTALBITAL APAP CAFFEINE [Concomitant]
     Active Substance: ACETAMINOPHEN\BUTALBITAL\CAFFEINE
  30. LYRICA [Concomitant]
     Active Substance: PREGABALIN
  31. NOVOLOG [Concomitant]
     Active Substance: INSULIN ASPART
  32. VENTOLIN [Concomitant]
     Active Substance: ALBUTEROL SULFATE

REACTIONS (3)
  - Drug ineffective [Unknown]
  - Cystic fibrosis [Not Recovered/Not Resolved]
  - Dyspepsia [Not Recovered/Not Resolved]
